FAERS Safety Report 7687911-9 (Version None)
Quarter: 2011Q3

REPORT INFORMATION
  Report Type: 
  Country: None (occurrence: None)
  Receive Date: 20110816
  Receipt Date: 20110816
  Transmission Date: 20111222
  Serious: Yes (Hospitalization)
  Sender: FDA-Public Use
  Company Number: None

PATIENT
  Age: 58 Year
  Sex: Male
  Weight: 65.7 kg

DRUGS (2)
  1. OXACILLIN [Suspect]
     Indication: INFECTION
     Dosage: 2 GM TID IV
     Route: 042
     Dates: start: 20110215, end: 20110306
  2. GENTAMICIN [Suspect]
     Dates: start: 20110208, end: 20110211

REACTIONS (1)
  - TUBULOINTERSTITIAL NEPHRITIS [None]
